FAERS Safety Report 5136215-7 (Version None)
Quarter: 2006Q4

REPORT INFORMATION
  Report Type: 
  Country: None (occurrence: None)
  Receive Date: 20061027
  Receipt Date: 20061016
  Transmission Date: 20070319
  Serious: Yes (Hospitalization)
  Sender: FDA-Public Use
  Company Number: NL-JNJFOC-20061004016

PATIENT
  Sex: Male

DRUGS (2)
  1. CONCERTA [Suspect]
     Indication: DRUG USE FOR UNKNOWN INDICATION
     Route: 048
  2. AMOXICILLIN [Suspect]
     Indication: BRONCHITIS
     Route: 065

REACTIONS (2)
  - BRONCHITIS [None]
  - STEVENS-JOHNSON SYNDROME [None]
